FAERS Safety Report 9678375 (Version 5)
Quarter: 2014Q1

REPORT INFORMATION
  Report Type: Spontaneous
  Country: US (occurrence: US)
  Receive Date: 20131108
  Receipt Date: 20140328
  Transmission Date: 20141002
  Serious: Yes (Life-Threatening, Other)
  Sender: FDA-Public Use
  Company Number: US-ROCHE-GNE297052

PATIENT
  Age: 43 Year
  Sex: Female
  Weight: 104.42 kg

DRUGS (38)
  1. XOLAIR [Suspect]
     Indication: ASTHMA
     Dosage: 300 MG, Q4W
     Route: 058
     Dates: start: 20060922
  2. XOLAIR [Suspect]
     Route: 065
     Dates: start: 20100112, end: 20100112
  3. EPIPEN [Concomitant]
     Indication: ANAPHYLACTIC REACTION
     Dosage: 0.3 MG, UNK
     Route: 065
  4. SALINE SOLUTION [Concomitant]
     Indication: HYPERSENSITIVITY
     Dosage: UNK
     Route: 065
  5. NASACORT AQ [Concomitant]
     Indication: RHINITIS ALLERGIC
     Dosage: 2 PUFF, BID, DOSE=2 PUFF, DAILY DOSE=4 PUFF
     Route: 055
     Dates: start: 2009
  6. PATANASE NASAL SPRAY [Concomitant]
     Indication: PRODUCT USED FOR UNKNOWN INDICATION
     Dosage: 2 PUFF, BID, DOSE=2 PUFF, DAILY DOSE=4 PUFF
     Route: 065
  7. XOPHENEX [Concomitant]
     Indication: ASTHMA
     Dosage: 1.25 MG, PRN
     Route: 055
     Dates: start: 2008
  8. ALVESCO [Concomitant]
     Indication: ASTHMA
     Dosage: 160 MCG
     Route: 055
     Dates: start: 2008
  9. ALVESCO [Concomitant]
     Dosage: 4 PUFFS
     Route: 055
  10. NEXIUM [Concomitant]
     Indication: GASTROOESOPHAGEAL REFLUX DISEASE
     Dosage: 40 MG, BID
     Route: 048
     Dates: start: 2008
  11. AFRIN (UNITED STATES) [Concomitant]
     Indication: NASAL CONGESTION
     Dosage: UNK
     Route: 065
  12. AFRIN (UNITED STATES) [Concomitant]
     Dosage: 2 SPRAYS PER NOSTRIL
     Route: 055
  13. BACTROBAN NASAL [Concomitant]
     Indication: PRODUCT USED FOR UNKNOWN INDICATION
     Dosage: UNK
     Route: 065
  14. LORATADINE [Concomitant]
     Indication: HYPERSENSITIVITY
     Dosage: 10 MG, QD
     Route: 048
  15. REGLAN [Concomitant]
     Indication: GASTROOESOPHAGEAL REFLUX DISEASE
     Dosage: 10 MG, QHS
     Route: 048
     Dates: start: 2006
  16. REGLAN [Concomitant]
     Indication: GASTROOESOPHAGEAL REFLUX DISEASE
  17. SINGULAIR [Concomitant]
     Indication: HYPERSENSITIVITY
     Dosage: 10 MG, QD
     Route: 048
     Dates: start: 2005
  18. SINGULAIR [Concomitant]
     Indication: ASTHMA
  19. SPIRIVA [Concomitant]
     Indication: ASTHMA
     Dosage: 1 UNK, QD 1 INH
     Route: 055
     Dates: start: 2004
  20. TOBRAMYCIN [Concomitant]
     Indication: SINUSITIS
     Dosage: UNK
     Route: 055
     Dates: start: 2009
  21. MUCINEX [Concomitant]
     Indication: NASOPHARYNGITIS
     Dosage: UNK
     Route: 048
  22. XYLOCAINE [Concomitant]
     Indication: PRODUCT USED FOR UNKNOWN INDICATION
     Dosage: 40 MG/ML, PRN
     Route: 065
  23. PATADAY [Concomitant]
     Indication: HYPERSENSITIVITY
     Dosage: UNK GTT, PRN, 2 PUFFS PER NOSTRIL
     Route: 065
     Dates: start: 2007
  24. LORAZEPAM [Concomitant]
     Indication: MENTAL DISORDER
     Dosage: 0.5 MG, PRN
     Route: 048
     Dates: start: 20101001, end: 20101011
  25. TYLENOL [Concomitant]
     Indication: PAIN
     Dosage: 500 MG, PRN
     Route: 048
  26. TYLENOL [Concomitant]
     Indication: HEADACHE
  27. OYSTER SHELL CALCIUM [Concomitant]
     Indication: PRODUCT USED FOR UNKNOWN INDICATION
     Dosage: 500 MG, QD
     Route: 048
  28. IBUPROFEN [Concomitant]
     Indication: PAIN
     Dosage: 800 MG, PRN
     Route: 048
  29. IMITREX [Concomitant]
     Indication: MIGRAINE
     Dosage: 100 MG, PRN
     Route: 048
  30. VICODIN [Concomitant]
     Indication: PRODUCT USED FOR UNKNOWN INDICATION
     Dosage: UNK MG, UNK
     Route: 065
  31. TRIAMCINOLON OINTMENT [Concomitant]
     Indication: PRODUCT USED FOR UNKNOWN INDICATION
     Dosage: 0.5 %, PRN
     Route: 065
  32. ZEGERID OTC [Concomitant]
     Indication: GASTROOESOPHAGEAL REFLUX DISEASE
     Dosage: 40 MG, QHS
     Route: 048
     Dates: start: 2008
  33. HI-CAL PLUS VITAMIN D [Concomitant]
     Indication: VITAMIN D DEFICIENCY
     Dosage: 1 TABLET, QD, DOSE=1 TABLET, DAILY DOSE=1 TABLET
     Route: 048
  34. ZOLOFT [Concomitant]
     Indication: DEPRESSION
     Dosage: 100 MG, QD
     Route: 048
     Dates: start: 20071027
  35. AZITHROMYCIN [Concomitant]
     Indication: SINUSITIS
     Dosage: 500 MG, QD
     Route: 048
     Dates: start: 20101005, end: 20101011
  36. PREDNISONE [Concomitant]
     Dosage: TAPERED FOR 10 DAYS
     Route: 048
     Dates: start: 20101001, end: 20101011
  37. VANCOMYCIN [Concomitant]
     Route: 065
     Dates: start: 2009
  38. AMITRIPTYLINE [Concomitant]
     Indication: HYPERSENSITIVITY
     Route: 048
     Dates: start: 2005

REACTIONS (5)
  - Anaphylactic reaction [Recovered/Resolved]
  - Hypersensitivity [Recovered/Resolved]
  - Cough [Recovered/Resolved]
  - Abdominal pain [Recovered/Resolved]
  - Asthma [Recovered/Resolved]
